FAERS Safety Report 17194327 (Version 1)
Quarter: 2019Q4

REPORT INFORMATION
  Report Type: Spontaneous
  Country: JP (occurrence: JP)
  Receive Date: 20191224
  Receipt Date: 20191224
  Transmission Date: 20200122
  Serious: Yes (Hospitalization, Other)
  Sender: FDA-Public Use
  Company Number: JP-BRISTOL-MYERS SQUIBB COMPANY-BMS-2019-122724

PATIENT
  Age: 70 Year
  Sex: Male
  Weight: 51.4 kg

DRUGS (1)
  1. OPDIVO [Suspect]
     Active Substance: NIVOLUMAB
     Indication: GASTRIC CANCER
     Dosage: 240 MG, Q2W
     Route: 041
     Dates: start: 20190816, end: 20191120

REACTIONS (8)
  - Decreased appetite [Recovered/Resolved]
  - Diarrhoea [Recovered/Resolved]
  - Prerenal failure [Unknown]
  - Metastases to peritoneum [Not Recovered/Not Resolved]
  - C-reactive protein increased [Unknown]
  - Postrenal failure [Unknown]
  - Infection [Unknown]
  - Subileus [Not Recovered/Not Resolved]

NARRATIVE: CASE EVENT DATE: 20191120
